FAERS Safety Report 4960251-4 (Version None)
Quarter: 2006Q1

REPORT INFORMATION
  Report Type: 
  Country: None (occurrence: None)
  Receive Date: 20060328
  Receipt Date: 20060321
  Transmission Date: 20060701
  Serious: Yes (Disabling, Other)
  Sender: FDA-Public Use
  Company Number: 2006040004

PATIENT
  Sex: Female
  Weight: 83.9154 kg

DRUGS (9)
  1. ZYRTEC [Suspect]
     Indication: URTICARIA
     Dosage: 10 MG (10 MG, 1 IN 1 D), ORAL
     Route: 048
  2. ADVAIR DISKUS 100/50 [Concomitant]
  3. ASTELIN (AZESLATINE HYDROCHLORIDE) [Concomitant]
  4. ZELNORM [Concomitant]
  5. METHIMAZOLE [Concomitant]
  6. NASONEX [Concomitant]
  7. SINGULAIR ^MERCK^ (MONTELUKAST SODIUM) [Concomitant]
  8. ATENOLOL/CHLORTHALIDONE (ATENOLOL, CHLORTALIDONE) [Concomitant]
  9. PRILOSEC [Concomitant]

REACTIONS (2)
  - BACK INJURY [None]
  - BREAST CANCER FEMALE [None]
